FAERS Safety Report 17889103 (Version 2)
Quarter: 2020Q2

REPORT INFORMATION
  Report Type: Report from Study
  Country: ES (occurrence: ES)
  Receive Date: 20200612
  Receipt Date: 20200623
  Transmission Date: 20200714
  Serious: Yes (Hospitalization)
  Sender: FDA-Public Use
  Company Number: ES-EISAI MEDICAL RESEARCH-EC-2020-075862

PATIENT
  Age: 64 Year
  Sex: Male
  Weight: 79.1 kg

DRUGS (14)
  1. PEMBROLIZUMAB. [Suspect]
     Active Substance: PEMBROLIZUMAB
     Route: 041
     Dates: start: 20200519, end: 20200519
  2. PEMBROLIZUMAB. [Suspect]
     Active Substance: PEMBROLIZUMAB
     Indication: BILE DUCT CANCER
     Route: 041
     Dates: start: 20191002, end: 20200421
  3. LENVATINIB [Suspect]
     Active Substance: LENVATINIB
     Route: 048
     Dates: start: 20200616, end: 20200616
  4. AMLODIPINE [Concomitant]
     Active Substance: AMLODIPINE BESYLATE
     Dates: start: 20191022
  5. ASPIRIN. [Concomitant]
     Active Substance: ASPIRIN
     Dates: start: 201904
  6. LENVATINIB [Suspect]
     Active Substance: LENVATINIB
     Route: 048
     Dates: start: 20200519, end: 20200519
  7. ACETAMINOPHEN. [Concomitant]
     Active Substance: ACETAMINOPHEN
     Dates: start: 20200506
  8. LENVATINIB [Suspect]
     Active Substance: LENVATINIB
     Indication: BILE DUCT CANCER
     Dosage: STARTING DOSE: 20 MILLIGRAM, QD, FLUCTUATED DOSES
     Route: 048
     Dates: start: 20191002, end: 20200508
  9. PITAVASTATIN CALCIUM [Concomitant]
     Active Substance: PITAVASTATIN CALCIUM
     Dates: start: 201807
  10. NOLOTIL [Concomitant]
     Dates: start: 20200506
  11. ENALAPRIL MALEATE. [Concomitant]
     Active Substance: ENALAPRIL MALEATE
     Dates: start: 201201
  12. BISOPROLOL [Concomitant]
     Active Substance: BISOPROLOL
     Dates: start: 201201
  13. ENOXAPARIN SODIUM. [Concomitant]
     Active Substance: ENOXAPARIN SODIUM
     Dates: start: 201904
  14. PEMBROLIZUMAB. [Suspect]
     Active Substance: PEMBROLIZUMAB
     Route: 041
     Dates: start: 20200616

REACTIONS (1)
  - Hyponatraemia [Recovered/Resolved]

NARRATIVE: CASE EVENT DATE: 20200607
